FAERS Safety Report 12069590 (Version 3)
Quarter: 2016Q2

REPORT INFORMATION
  Report Type: Spontaneous
  Country: US (occurrence: US)
  Receive Date: 20160211
  Receipt Date: 20160407
  Transmission Date: 20160815
  Serious: Yes (Other)
  Sender: FDA-Public Use
  Company Number: US-BIODELIVERY SCIENCES INTERNATIONAL, INC.-US-2016BDS000017

PATIENT

DRUGS (1)
  1. BUNAVAIL [Suspect]
     Active Substance: BUPRENORPHINE HYDROCHLORIDE\NALOXONE HYDROCHLORIDE DIHYDRATE
     Indication: PRODUCT USED FOR UNKNOWN INDICATION
     Dosage: 4.2/0.7 MG BID
     Route: 002
     Dates: start: 20160104, end: 20160114

REACTIONS (1)
  - Anger [Unknown]

NARRATIVE: CASE EVENT DATE: 201601
